FAERS Safety Report 20680378 (Version 1)
Quarter: 2022Q2

REPORT INFORMATION
  Report Type: Report from Study
  Country: US (occurrence: US)
  Receive Date: 20220406
  Receipt Date: 20220406
  Transmission Date: 20220720
  Serious: Yes (Other)
  Sender: FDA-Public Use
  Company Number: US-BAYER-2022A034744

PATIENT
  Age: 66 Year
  Sex: Male

DRUGS (2)
  1. XOFIGO [Suspect]
     Active Substance: RADIUM RA-223 DICHLORIDE
     Indication: Hormone-refractory prostate cancer
     Dosage: 127.70 ?CI, Q4WK
     Route: 042
     Dates: start: 20220208, end: 20220208
  2. XOFIGO [Suspect]
     Active Substance: RADIUM RA-223 DICHLORIDE
     Indication: Hormone-refractory prostate cancer
     Dosage: 127.70 ?CI, Q4WK
     Route: 042

REACTIONS (2)
  - Blood test abnormal [Unknown]
  - Laboratory test abnormal [None]
